FAERS Safety Report 15728755 (Version 1)
Quarter: 2018Q4

REPORT INFORMATION
  Report Type: Spontaneous
  Country: CZ (occurrence: CZ)
  Receive Date: 20181217
  Receipt Date: 20181217
  Transmission Date: 20190205
  Serious: Yes (Death, Hospitalization, Other)
  Sender: FDA-Public Use
  Company Number: PHHY2018CZ184661

PATIENT
  Age: 65 Year
  Sex: Female

DRUGS (5)
  1. ATORVASTATIN [Suspect]
     Active Substance: ATORVASTATIN
     Indication: PRODUCT USED FOR UNKNOWN INDICATION
     Dosage: 80 DF, UNK
     Route: 065
  2. MOXONIDINE [Suspect]
     Active Substance: MOXONIDINE
     Indication: PRODUCT USED FOR UNKNOWN INDICATION
     Dosage: 50 DF, UNK
     Route: 065
  3. DIACEREIN [Suspect]
     Active Substance: DIACEREIN
     Indication: PRODUCT USED FOR UNKNOWN INDICATION
     Dosage: 80 DF, UNK
     Route: 065
  4. URAPIDIL [Suspect]
     Active Substance: URAPIDIL
     Indication: PRODUCT USED FOR UNKNOWN INDICATION
     Dosage: 250 DF, UNK
     Route: 065
  5. TRANDOLAPRIL AND VERAPAMIL HYDROCHLORIDE [Suspect]
     Active Substance: TRANDOLAPRIL\VERAPAMIL HYDROCHLORIDE
     Indication: PRODUCT USED FOR UNKNOWN INDICATION
     Dosage: 42 DOSAGE FORM
     Route: 065

REACTIONS (13)
  - Blood creatinine increased [Unknown]
  - Toxicity to various agents [Fatal]
  - Cardiomyopathy [Unknown]
  - Overdose [Fatal]
  - Rhabdomyolysis [Unknown]
  - Blood creatine phosphokinase increased [Unknown]
  - Troponin I increased [Unknown]
  - Cardiogenic shock [Fatal]
  - Suicide attempt [Fatal]
  - Renal tubular necrosis [Unknown]
  - Loss of consciousness [Unknown]
  - Myoglobin blood increased [Unknown]
  - Acute kidney injury [Fatal]
